FAERS Safety Report 6816943-5 (Version None)
Quarter: 2010Q3

REPORT INFORMATION
  Report Type: 
  Country: None (occurrence: None)
  Receive Date: 20100706
  Receipt Date: 20100702
  Transmission Date: 20110219
  Serious: Yes (Other)
  Sender: FDA-Public Use
  Company Number: US-BRISTOL-MYERS SQUIBB COMPANY-15176522

PATIENT

DRUGS (1)
  1. ONGLYZA [Suspect]
     Dosage: MAY BE 2.5MG

REACTIONS (1)
  - ALANINE AMINOTRANSFERASE INCREASED [None]
